FAERS Safety Report 7274411-3 (Version None)
Quarter: 2011Q1

REPORT INFORMATION
  Report Type: 
  Country: None (occurrence: None)
  Receive Date: 20110204
  Receipt Date: 20110127
  Transmission Date: 20110831
  Serious: Yes (Hospitalization, Other)
  Sender: FDA-Public Use
  Company Number: US-JNJFOC-20110107651

PATIENT
  Sex: Male
  Weight: 90.72 kg

DRUGS (10)
  1. DURAGESIC-50 [Suspect]
     Dosage: 150=100 AND 50 UG/HR
     Route: 062
  2. DURAGESIC-50 [Suspect]
     Indication: BACK PAIN
     Dosage: 150=100 AND 50 UG/HR
     Route: 062
  3. DURAGESIC-50 [Suspect]
     Indication: MUSCULOSKELETAL PAIN
     Dosage: 150=100 AND 50 UG/HR
     Route: 062
  4. DURAGESIC-50 [Suspect]
     Dosage: 150=100 AND 50 UG/HR
     Route: 062
  5. OXYCONTIN [Concomitant]
     Indication: BACK PAIN
     Route: 048
  6. FENTANYL CITRATE [Suspect]
     Indication: MUSCULOSKELETAL PAIN
     Route: 062
  7. OXYCONTIN [Concomitant]
     Indication: MUSCULOSKELETAL PAIN
     Route: 048
  8. OXYCODONE HCL [Concomitant]
     Indication: BACK PAIN
     Route: 048
  9. OXYCODONE HCL [Concomitant]
     Indication: MUSCULOSKELETAL PAIN
     Route: 048
  10. FENTANYL CITRATE [Suspect]
     Indication: BACK PAIN
     Route: 062

REACTIONS (9)
  - MALAISE [None]
  - HEADACHE [None]
  - PAIN [None]
  - WITHDRAWAL SYNDROME [None]
  - PRODUCT QUALITY ISSUE [None]
  - MYOCARDIAL INFARCTION [None]
  - TREMOR [None]
  - PALPITATIONS [None]
  - DYSPNOEA [None]
